FAERS Safety Report 4475409-0 (Version None)
Quarter: 2004Q4

REPORT INFORMATION
  Report Type: 
  Country: None (occurrence: None)
  Receive Date: 20041015
  Receipt Date: 20040615
  Transmission Date: 20050328
  Serious: Yes (Hospitalization, Other)
  Sender: FDA-Public Use
  Company Number: US-ABBOTT-04P-163-0263876-00

PATIENT
  Sex: Female
  Weight: 58.112 kg

DRUGS (41)
  1. SYNTHROID [Suspect]
     Indication: HYPOTHYROIDISM
     Route: 048
     Dates: start: 20010901, end: 20020201
  2. SYNTHROID [Suspect]
     Route: 048
     Dates: start: 20001101, end: 20010809
  3. SYNTHROID [Suspect]
     Route: 048
     Dates: end: 20020301
  4. SYNTHROID [Suspect]
  5. DYAZIDE [Concomitant]
     Indication: OEDEMA
     Dosage: 37.5/25
     Route: 048
  6. DYAZIDE [Concomitant]
     Indication: HYPERTENSION
  7. MAXZIDE [Concomitant]
     Indication: OEDEMA
     Route: 048
     Dates: start: 20000710
  8. MAXZIDE [Concomitant]
     Indication: HYPERTENSION
     Route: 048
  9. B COMPLEX WITH ZINC [Concomitant]
     Indication: DRUG USE FOR UNKNOWN INDICATION
     Route: 048
  10. B12 THIAMINE [Concomitant]
     Indication: DRUG USE FOR UNKNOWN INDICATION
     Route: 048
  11. B6 PYROXIDINE [Concomitant]
     Indication: DRUG USE FOR UNKNOWN INDICATION
     Route: 048
  12. CYANOCOBALAMIN [Concomitant]
     Indication: VITAMIN B12 DEFICIENCY
     Dates: start: 19990101, end: 20000401
  13. CLONIDINE HCL [Concomitant]
     Indication: DRUG USE FOR UNKNOWN INDICATION
     Route: 048
  14. CITALOPRAM HYDROBROMIDE [Concomitant]
     Indication: DRUG USE FOR UNKNOWN INDICATION
  15. FAMOTIDINE [Concomitant]
     Indication: DRUG USE FOR UNKNOWN INDICATION
  16. OXYCOCET [Concomitant]
     Indication: DRUG USE FOR UNKNOWN INDICATION
     Dosage: 5/325 MG
  17. TTS PATCH [Concomitant]
     Indication: DRUG USE FOR UNKNOWN INDICATION
  18. ACETYLSALICYLIC ACID [Concomitant]
     Indication: DRUG USE FOR UNKNOWN INDICATION
  19. TRANDOLAPRIL [Concomitant]
     Indication: DRUG USE FOR UNKNOWN INDICATION
     Dates: start: 20010308
  20. DIOVAN [Concomitant]
     Indication: DRUG USE FOR UNKNOWN INDICATION
     Route: 048
  21. CYANOCOBALAMIN [Concomitant]
     Indication: DRUG USE FOR UNKNOWN INDICATION
     Route: 048
     Dates: start: 20020201
  22. PREDNISONE [Concomitant]
     Indication: DRUG USE FOR UNKNOWN INDICATION
     Route: 048
     Dates: start: 20020203
  23. PREDNISONE [Concomitant]
     Indication: CELLULITIS
     Route: 048
  24. PREDNISONE [Concomitant]
     Route: 048
  25. TEMAZEPAM [Concomitant]
     Indication: INSOMNIA
     Dosage: 1-2
     Route: 048
  26. TEMAZEPAM [Concomitant]
     Route: 048
  27. RANITIDINE [Concomitant]
     Indication: DRUG USE FOR UNKNOWN INDICATION
  28. LEVOTHYROXINE SODIUM [Concomitant]
     Indication: HYPOTHYROIDISM
     Route: 048
  29. FAMOTIDINE [Concomitant]
     Route: 048
  30. PROPACET 100 [Concomitant]
     Indication: PAIN
     Route: 048
  31. BISACODYL [Concomitant]
     Indication: DRUG USE FOR UNKNOWN INDICATION
     Route: 048
  32. SENNA FRUIT [Concomitant]
     Indication: DRUG USE FOR UNKNOWN INDICATION
     Dosage: 1-4
     Route: 048
  33. DOCUSATE [Concomitant]
     Indication: DRUG USE FOR UNKNOWN INDICATION
     Route: 048
  34. HYDROXYZINE [Concomitant]
     Indication: DRUG USE FOR UNKNOWN INDICATION
     Route: 048
  35. PARACETAMOL [Concomitant]
     Indication: DRUG USE FOR UNKNOWN INDICATION
     Route: 048
  36. CEPHALEXIN MONOHYDRATE [Concomitant]
     Indication: CELLULITIS
     Route: 048
     Dates: start: 20020203
  37. POTASSIUM CHLORIDE [Concomitant]
     Indication: DRUG USE FOR UNKNOWN INDICATION
     Route: 048
     Dates: start: 20020201
  38. CLONIDINE HCL [Concomitant]
     Route: 048
     Dates: start: 20020201
  39. FUROSEMIDE [Concomitant]
     Indication: DRUG USE FOR UNKNOWN INDICATION
     Route: 048
  40. ASPIRIN [Concomitant]
     Indication: DRUG USE FOR UNKNOWN INDICATION
     Route: 048
  41. METOPROLOL TARTRATE [Concomitant]
     Indication: DRUG USE FOR UNKNOWN INDICATION
     Route: 048

REACTIONS (27)
  - ANXIETY [None]
  - ASTHENIA [None]
  - BLISTER [None]
  - BURNING SENSATION [None]
  - CELLULITIS [None]
  - ERYTHEMA [None]
  - GENERALISED ERYTHEMA [None]
  - HYPERREFLEXIA [None]
  - HYPERSENSITIVITY [None]
  - HYPERTHYROIDISM [None]
  - HYPOREFLEXIA [None]
  - HYPOTONIA [None]
  - LACUNAR INFARCTION [None]
  - LOCALISED INFECTION [None]
  - MUSCLE ATROPHY [None]
  - NERVOUSNESS [None]
  - OEDEMA PERIPHERAL [None]
  - PERIPHERAL COLDNESS [None]
  - PERONEAL NERVE PALSY [None]
  - POOR PERIPHERAL CIRCULATION [None]
  - REPETITIVE SPEECH [None]
  - STOMACH DISCOMFORT [None]
  - SWELLING [None]
  - SYNCOPE [None]
  - TREMOR [None]
  - VOMITING [None]
  - WEIGHT DECREASED [None]
